FAERS Safety Report 6908979-0 (Version None)
Quarter: 2010Q3

REPORT INFORMATION
  Report Type: 
  Country: None (occurrence: None)
  Receive Date: 20100803
  Receipt Date: 20100727
  Transmission Date: 20110219
  Serious: Yes (Other)
  Sender: FDA-Public Use
  Company Number: 1000015369

PATIENT
  Age: 63 Year
  Sex: Female

DRUGS (1)
  1. THYROID TAB [Suspect]
     Indication: HYPOTHYROIDISM
     Dosage: 120 MG (120 MG, 1 IN 1 D), ORAL
     Route: 048
     Dates: start: 20100613, end: 20100727

REACTIONS (10)
  - ANXIETY [None]
  - COLD SWEAT [None]
  - DECREASED APPETITE [None]
  - DEPRESSION [None]
  - HYPERHIDROSIS [None]
  - INSOMNIA [None]
  - MYALGIA [None]
  - PANIC ATTACK [None]
  - SUICIDAL IDEATION [None]
  - WEIGHT DECREASED [None]
